FAERS Safety Report 18862591 (Version 1)
Quarter: 2021Q1

REPORT INFORMATION
  Report Type: Spontaneous
  Country: US (occurrence: US)
  Receive Date: 20210208
  Receipt Date: 20210208
  Transmission Date: 20210420
  Serious: No
  Sender: FDA-Public Use
  Company Number: US-GE HEALTHCARE LIFE SCIENCES-2020CSU006588

PATIENT
  Age: 46 Year
  Sex: Female

DRUGS (7)
  1. GABAPENTIN. [Concomitant]
     Active Substance: GABAPENTIN
  2. CLARITIN [Concomitant]
     Active Substance: LORATADINE
  3. OMNIPAQUE [Suspect]
     Active Substance: IOHEXOL
     Indication: LOSS OF CONSCIOUSNESS
  4. OMNIPAQUE [Suspect]
     Active Substance: IOHEXOL
     Indication: HEADACHE
  5. OMNIPAQUE [Suspect]
     Active Substance: IOHEXOL
     Indication: ANGIOGRAM
     Dosage: 100 ML, SINGLE
     Route: 042
     Dates: start: 20201221, end: 20201221
  6. BUSPAR [Concomitant]
     Active Substance: BUSPIRONE HYDROCHLORIDE
  7. MOBIC [Concomitant]
     Active Substance: MELOXICAM

REACTIONS (1)
  - Contrast media allergy [Recovered/Resolved]

NARRATIVE: CASE EVENT DATE: 20201221
